FAERS Safety Report 11592443 (Version 2)
Quarter: 2015Q4

REPORT INFORMATION
  Report Type: Spontaneous
  Country: IT (occurrence: IT)
  Receive Date: 20151005
  Receipt Date: 20151009
  Transmission Date: 20160304
  Serious: Yes (Death)
  Sender: FDA-Public Use
  Company Number: IT-ACCORD-034052

PATIENT
  Age: 70 Year
  Sex: Female
  Weight: 65 kg

DRUGS (1)
  1. PACLITAXEL/PACLITAXEL LIPOSOME [Suspect]
     Active Substance: PACLITAXEL
     Indication: UTERINE CANCER
     Route: 042
     Dates: start: 20150918, end: 20150918

REACTIONS (4)
  - Loss of consciousness [Fatal]
  - Dyspnoea [Fatal]
  - Off label use [Unknown]
  - Unresponsive to stimuli [Fatal]

NARRATIVE: CASE EVENT DATE: 20150918
